FAERS Safety Report 18293850 (Version 2)
Quarter: 2020Q3

REPORT INFORMATION
  Report Type: Spontaneous
  Country: US (occurrence: US)
  Receive Date: 20200922
  Receipt Date: 20200928
  Transmission Date: 20201103
  Serious: Yes (Hospitalization, Other)
  Sender: FDA-Public Use
  Company Number: US-AMGEN-USASP2020152582

PATIENT
  Age: 92 Year
  Sex: Female

DRUGS (2)
  1. ENBREL [Suspect]
     Active Substance: ETANERCEPT
     Indication: PRODUCT USED FOR UNKNOWN INDICATION
     Dosage: UNK
     Route: 065
     Dates: start: 1999
  2. ENBREL [Suspect]
     Active Substance: ETANERCEPT
     Dosage: UNK
     Route: 065

REACTIONS (5)
  - Therapeutic product effect decreased [Unknown]
  - Hospitalisation [Unknown]
  - Eye operation [Unknown]
  - Injection site pain [Unknown]
  - Device difficult to use [Unknown]

NARRATIVE: CASE EVENT DATE: 2020
